FAERS Safety Report 15119892 (Version 1)
Quarter: 2018Q3

REPORT INFORMATION
  Report Type: Spontaneous
  Country: DE (occurrence: DE)
  Receive Date: 20180709
  Receipt Date: 20180709
  Transmission Date: 20181010
  Serious: Yes (Life-Threatening)
  Sender: FDA-Public Use
  Company Number: PHHY1999DE002184

PATIENT
  Age: 75 Year
  Sex: Female
  Weight: 69 kg

DRUGS (76)
  1. DORMICUM (MIDAZOLAM MALEATE) [Suspect]
     Active Substance: MIDAZOLAM MALEATE
     Indication: SEDATION
     Dosage: 7.5 MG, QD
     Route: 048
     Dates: start: 19981119, end: 19981119
  2. DORMICUM (MIDAZOLAM MALEATE) [Suspect]
     Active Substance: MIDAZOLAM MALEATE
     Dosage: 40 MG, QD
     Route: 042
     Dates: start: 19981120, end: 19981120
  3. BEPANTHEN (DEXPANTHENOL) [Suspect]
     Active Substance: DEXPANTHENOL
     Dosage: 1 DF, QD
     Route: 048
     Dates: start: 19981207
  4. MEVINACOR [Concomitant]
     Active Substance: LOVASTATIN
     Indication: HYPERCHOLESTEROLAEMIA
     Dosage: 0.5 DF, QD
     Route: 048
     Dates: start: 19981116
  5. PANCURONIUM [Concomitant]
     Active Substance: PANCURONIUM
     Indication: GENERAL ANAESTHESIA
     Dosage: 6 MG, QD
     Route: 042
     Dates: start: 19981120, end: 19981120
  6. FENTANYL JANSSEN?CILAG PH [Concomitant]
     Indication: GENERAL ANAESTHESIA
     Dosage: 0.25 MG, QD
     Route: 042
     Dates: start: 19981120, end: 19981120
  7. SOSTRIL [Concomitant]
     Active Substance: RANITIDINE HYDROCHLORIDE
     Dosage: 1 DF(UG/L), QD
     Route: 042
     Dates: start: 19981120, end: 19981120
  8. SUFENTA [Concomitant]
     Active Substance: SUFENTANIL CITRATE
     Dosage: UNK
     Route: 042
  9. KALIUMKLORID [Concomitant]
     Indication: HYPOKALAEMIA
     Dosage: 50 ML, UNK
     Route: 042
     Dates: start: 19981120, end: 19981122
  10. DEHYDROBENZPERIDOL [Concomitant]
     Active Substance: DROPERIDOL
     Dosage: UNK
     Route: 042
  11. ATROPINE. [Concomitant]
     Active Substance: ATROPINE
     Dosage: UNK
     Route: 042
  12. RINGERS SOLUTION [Concomitant]
     Active Substance: CALCIUM CHLORIDE\POTASSIUM CHLORIDE\SODIUM CHLORIDE
     Indication: FLUID REPLACEMENT
     Dosage: UNK
     Route: 042
     Dates: start: 19981120, end: 19981120
  13. ISOFLURAN [Concomitant]
     Active Substance: ISOFLURANE
     Indication: GENERAL ANAESTHESIA
     Route: 055
  14. MAGALDRATE [Suspect]
     Active Substance: MAGALDRATE
     Indication: ULCER
     Dosage: 1 DF, QD
     Route: 048
     Dates: start: 19981128
  15. PHENHYDAN [Suspect]
     Active Substance: PHENYTOIN
     Indication: PROPHYLAXIS
     Dosage: 1 DF, QD
     Route: 042
     Dates: start: 19981120, end: 19981120
  16. ASPIRIN 100 MG [Suspect]
     Active Substance: ASPIRIN
     Indication: CORONARY ARTERY DISEASE
     Dosage: 100 MG, QD
     Route: 048
     Dates: end: 19981116
  17. PHENHYDAN FOR INJECTION [Suspect]
     Active Substance: PHENYTOIN SODIUM
     Dosage: 100 MG, QD
     Route: 048
     Dates: start: 19981121
  18. DILZEM ? SLOW RELEASE [Concomitant]
     Active Substance: DILTIAZEM HYDROCHLORIDE
     Indication: CORONARY ARTERY DISEASE
     Dosage: 1 DF, UNK
     Route: 048
  19. POTASSIUM CARBONATE , POTASSIUM CITRATE [Concomitant]
     Indication: HYPOKALAEMIA
     Dosage: 2 DF, QD
     Route: 048
     Dates: start: 19981121, end: 19981122
  20. DEPOT?H?INSULIN [Concomitant]
     Indication: HYPERGLYCAEMIA
     Dosage: 8 IU, QD
     Route: 058
     Dates: start: 19981120, end: 19981120
  21. RANITIDINE. [Concomitant]
     Active Substance: RANITIDINE
     Indication: ULCER
     Dosage: 1 DF, QD
     Route: 048
     Dates: start: 19981116
  22. GLUCOSE [Concomitant]
     Active Substance: DEXTROSE
     Indication: FLUID REPLACEMENT
     Dosage: 500 ML, QD
     Route: 042
     Dates: start: 19981120, end: 19981122
  23. FLUIMUCIL [Concomitant]
     Active Substance: ACETYLCYSTEINE
     Indication: PRODUCT USED FOR UNKNOWN INDICATION
     Dosage: 2 DF, QD
     Route: 042
     Dates: start: 19981120, end: 19981122
  24. FLUIMUCIL [Concomitant]
     Active Substance: ACETYLCYSTEINE
     Dosage: 1 DF(UG/L), QD
     Route: 042
     Dates: start: 19981120, end: 19981122
  25. EBRANTIL [Concomitant]
     Active Substance: URAPIDIL
     Indication: HYPERTENSION
     Dosage: 110 MG (DAILY DOSE), , INTRAVENOUS
     Route: 042
     Dates: start: 19981120, end: 19981120
  26. ARISTOCHOL KONZENTRAT [Concomitant]
     Active Substance: DIETARY SUPPLEMENT\HERBALS
     Indication: CONSTIPATION
     Dosage: 1 DF(UG/L), QD
     Route: 048
     Dates: start: 19981116
  27. DEXAMETHASONE. [Concomitant]
     Active Substance: DEXAMETHASONE
     Indication: PROPHYLAXIS
     Dosage: 8 MG, QD
     Route: 048
     Dates: start: 19981116, end: 19981128
  28. HEPARIN [Concomitant]
     Active Substance: HEPARIN SODIUM
     Indication: THROMBOSIS PROPHYLAXIS
     Dosage: 15000 IU, QD
     Route: 058
     Dates: start: 19981116
  29. EBRANTIL [Concomitant]
     Active Substance: URAPIDIL
     Route: 042
  30. DEXAMETHASON [Concomitant]
     Active Substance: DEXAMETHASONE
     Indication: PROPHYLAXIS
     Dosage: UNK
     Route: 048
  31. PHENHYDAN FOR INJECTION [Suspect]
     Active Substance: PHENYTOIN SODIUM
     Indication: PROPHYLAXIS
     Dosage: 100 MG, QD
     Route: 048
     Dates: start: 19981116, end: 19981119
  32. ACC [Suspect]
     Active Substance: ACETYLCYSTEINE
     Indication: PRODUCT USED FOR UNKNOWN INDICATION
     Dosage: 1 DF(UG/L), QD
     Route: 048
     Dates: start: 19981202
  33. NOVALGIN (METAMIZOLE SODIUM) [Suspect]
     Active Substance: METAMIZOLE SODIUM
     Indication: PYREXIA
     Dosage: 20 GTT, QD
     Route: 048
     Dates: start: 19981202, end: 19981202
  34. VESDIL [Suspect]
     Active Substance: RAMIPRIL
     Indication: HYPERTENSION
     Dosage: 2.5 MG, QD
     Route: 048
     Dates: start: 19981122
  35. HEPARIN [Concomitant]
     Active Substance: HEPARIN SODIUM
     Dosage: 10000 IU, QD
     Route: 042
     Dates: start: 19981120, end: 19981122
  36. GASTROZEPIN [Concomitant]
     Active Substance: PIRENZEPINE HYDROCHLORIDE
     Indication: ULCER
     Dosage: 2 DF, QD
     Route: 042
     Dates: start: 19981120, end: 19981120
  37. ISOFLURANE. [Concomitant]
     Active Substance: ISOFLURANE
     Indication: GENERAL ANAESTHESIA
     Dosage: UNK
     Route: 055
  38. GLUCOSE 5% [Concomitant]
     Active Substance: DEXTROSE
     Indication: FLUID REPLACEMENT
     Dosage: UNK
     Route: 042
  39. PHENHYDAN FOR INJECTION [Suspect]
     Active Substance: PHENYTOIN SODIUM
     Dosage: 1 DF, QD
     Route: 042
     Dates: start: 19981120
  40. PHENAEMAL [Suspect]
     Active Substance: PHENOBARBITAL
     Indication: PROPHYLAXIS
     Dosage: 0.1 MG, QD
     Route: 048
     Dates: start: 19981001, end: 19981115
  41. DORMICUM (INJ) [Suspect]
     Active Substance: MIDAZOLAM HYDROCHLORIDE
     Indication: SEDATION
     Dosage: 40 MG, QD
     Route: 048
     Dates: start: 19981120
  42. DORMICUM (ORAL) [Suspect]
     Active Substance: MIDAZOLAM MALEATE
     Indication: SEDATION
     Dosage: 7.5 MG, QD
     Route: 048
     Dates: start: 19981119
  43. DIAZEPAM. [Suspect]
     Active Substance: DIAZEPAM
     Indication: SEDATION
     Dosage: UNK
     Route: 048
  44. SODIUM CHLORIDE. [Concomitant]
     Active Substance: SODIUM CHLORIDE
     Indication: FLUID REPLACEMENT
     Dosage: 548 ML, QD
     Route: 042
     Dates: start: 19981120, end: 19981122
  45. THIOPENTAL [Concomitant]
     Active Substance: THIOPENTAL
     Indication: GENERAL ANAESTHESIA
     Dosage: 400 MG, QD
     Route: 042
     Dates: start: 19981120, end: 19981120
  46. RANITIDINE. [Concomitant]
     Active Substance: RANITIDINE
     Dosage: 300 MG, QD
     Route: 042
     Dates: start: 19981120, end: 19981121
  47. ATROPINE. [Concomitant]
     Active Substance: ATROPINE
     Indication: ARRHYTHMIA
     Dosage: 0.5 MG, QD
     Route: 040
     Dates: start: 19981120, end: 19981120
  48. KALINOR?BRAUSETABLETTEN [Concomitant]
     Active Substance: POTASSIUM CARBONATE\POTASSIUM CITRATE
     Indication: HYPOKALAEMIA
     Dosage: 1 DF(UG/L), QD
     Route: 048
     Dates: start: 19981121, end: 19981122
  49. DOPAMIN [Concomitant]
     Active Substance: DOPAMINE HYDROCHLORIDE
     Indication: PRODUCT USED FOR UNKNOWN INDICATION
     Dosage: 200 MG, QD
     Route: 042
     Dates: start: 19981120, end: 19981120
  50. NATRIUM CHLORIDUM [Concomitant]
     Active Substance: SODIUM CHLORIDE
     Indication: FLUID REPLACEMENT
     Dosage: UNK
     Route: 042
  51. NITRAZEPAM [Suspect]
     Active Substance: NITRAZEPAM
     Indication: SEDATION
     Dosage: 5 MG, QD
     Route: 048
     Dates: start: 19981119, end: 19981207
  52. PHENHYDAN [Suspect]
     Active Substance: PHENYTOIN
     Dosage: 100 MG, QD
     Route: 048
     Dates: start: 19981121
  53. BEPANTHEN (DEXPANTHENOL) [Suspect]
     Active Substance: DEXPANTHENOL
     Indication: DRY MOUTH
     Dosage: 1 DF, QD
     Route: 048
     Dates: start: 19981121, end: 19981203
  54. BEPANTHEN (DEXPANTHENOL) [Suspect]
     Active Substance: DEXPANTHENOL
     Dosage: 3 DF, QD
     Route: 048
     Dates: start: 19981207
  55. SILOMAT (CLOBUTINOL HYDROCHLORIDE) [Suspect]
     Active Substance: CLOBUTINOL HYDROCHLORIDE
     Indication: COUGH
     Dosage: UNK
     Route: 048
  56. DOPAMINE [Concomitant]
     Active Substance: DOPAMINE\DOPAMINE HYDROCHLORIDE
     Indication: PRODUCT USED FOR UNKNOWN INDICATION
     Dosage: 200 MG, QD
     Route: 042
     Dates: start: 19981120, end: 19981120
  57. PANCURONIUM [Concomitant]
     Active Substance: PANCURONIUM
     Dosage: UNK
     Route: 042
  58. HEPARIN [Concomitant]
     Active Substance: HEPARIN SODIUM
     Dosage: 7500 IU, QD
     Route: 058
     Dates: start: 19981116
  59. DEPOT?H?INSULIN [Concomitant]
     Dosage: UNK
     Route: 058
  60. DEHYDROBENZPERIDOL [Concomitant]
     Active Substance: DROPERIDOL
     Indication: GENERAL ANAESTHESIA
     Dosage: 1.25 MG (DAILY DOSE), , INTRAVENOUS
     Route: 042
     Dates: start: 19981120, end: 19981120
  61. KALIUMCHLORID [Concomitant]
     Active Substance: POTASSIUM CHLORIDE
     Indication: HYPOKALAEMIA
     Dosage: 20 MMOL, QD
     Route: 042
     Dates: start: 19981120, end: 19981122
  62. FENTANYL ^JANSSEN^ [Concomitant]
     Active Substance: FENTANYL
     Indication: GENERAL ANAESTHESIA
     Dosage: UNK
     Route: 042
  63. SOSTRIL [Concomitant]
     Active Substance: RANITIDINE HYDROCHLORIDE
     Indication: ULCER
     Dosage: 4 DF, QD
     Route: 042
     Dates: start: 19981120, end: 19981120
  64. ADALAT [Concomitant]
     Active Substance: NIFEDIPINE
     Indication: HYPERTENSION
     Dosage: 1 DF, QD
     Route: 048
     Dates: start: 19981121, end: 19981121
  65. RANITIDIN [Concomitant]
     Active Substance: RANITIDINE HYDROCHLORIDE
     Indication: ULCER
     Dosage: 300 MG, QD
     Route: 042
     Dates: start: 19981120, end: 19981121
  66. RANITIDIN [Concomitant]
     Active Substance: RANITIDINE HYDROCHLORIDE
     Dosage: 1 DF, QD
     Route: 048
     Dates: start: 19981116
  67. ASPIRIN. [Suspect]
     Active Substance: ASPIRIN
     Indication: CORONARY ARTERY DISEASE
     Dosage: 100 MG, UNK
     Route: 048
     Dates: end: 19981116
  68. CODEIN [Suspect]
     Active Substance: CODEINE
     Indication: COUGH
     Dosage: 15 GTT, QD
     Route: 048
     Dates: start: 19981204
  69. PASPERTIN [Concomitant]
     Indication: NAUSEA
     Dosage: 25 GTT (DAILY DOSE), , ORAL
     Route: 048
     Dates: start: 19981119, end: 19981119
  70. PASPERTIN [Concomitant]
     Dosage: 1 DF, UNK
     Route: 042
     Dates: start: 19981120, end: 19981120
  71. FORTECORTIN [Concomitant]
     Active Substance: DEXAMETHASONE
     Indication: PROPHYLAXIS
     Dosage: 4 MG, QD
     Route: 042
     Dates: start: 19981120, end: 19981121
  72. GASTROZEPIN [Concomitant]
     Active Substance: PIRENZEPINE HYDROCHLORIDE
     Dosage: 1 DF, UNK
     Route: 042
     Dates: start: 19981120, end: 19981120
  73. SUFENTA [Concomitant]
     Active Substance: SUFENTANIL CITRATE
     Indication: GENERAL ANAESTHESIA
     Dosage: 5 ML, QD
     Route: 042
     Dates: start: 19981120, end: 19981120
  74. ALOE FEROX EXTRACT, CHELIDONINE, CURCUMA LONGA RHIZOME, PANCREATIN, SI [Concomitant]
     Indication: PRODUCT USED FOR UNKNOWN INDICATION
     Dosage: 1 DF, QD
     Route: 048
     Dates: start: 19981116
  75. DILAZEM [Concomitant]
     Indication: CORONARY ARTERY DISEASE
     Dosage: 1 DF, QD
     Route: 048
  76. RINGER^S INJECTION [Concomitant]
     Indication: FLUID REPLACEMENT
     Dosage: UNK
     Route: 042

REACTIONS (1)
  - Stevens-Johnson syndrome [Recovering/Resolving]

NARRATIVE: CASE EVENT DATE: 19981207
